FAERS Safety Report 7169948-1 (Version None)
Quarter: 2010Q4

REPORT INFORMATION
  Report Type: 
  Country: None (occurrence: None)
  Receive Date: 20101217
  Receipt Date: 20101214
  Transmission Date: 20110411
  Serious: Yes (Death, Hospitalization, Other)
  Sender: FDA-Public Use
  Company Number: IT-BRISTOL-MYERS SQUIBB COMPANY-15442585

PATIENT
  Age: 85 Year
  Sex: Female

DRUGS (11)
  1. COUMADIN [Suspect]
     Indication: PROPHYLAXIS
     Dosage: INTER ON 07DEC2010
     Dates: start: 20070101
  2. KLACID [Suspect]
     Indication: PNEUMONITIS
     Dosage: FORMULATION:KLACID 500 MG ORAL TABS 2 UNITS PER DAY
     Route: 048
     Dates: start: 20101206, end: 20101210
  3. ZYLORIC [Suspect]
     Indication: HYPERURICAEMIA
     Dosage: FORMULATION:ZYLORIC 300 MG ORAL TABS. 1 DF:1 UNIT
     Route: 048
     Dates: start: 20100101, end: 20101210
  4. OMEPRAZOLE [Concomitant]
  5. ROCEPHIN [Concomitant]
     Indication: PNEUMONITIS
     Route: 042
     Dates: start: 20101206, end: 20101210
  6. ALDACTONE [Concomitant]
     Dosage: FORMULATION:CAPS
     Route: 048
  7. CONGESCOR [Concomitant]
     Dosage: FORMULATION:TABS
  8. LASIX [Concomitant]
  9. NITRODERM [Concomitant]
  10. HUMULIN R [Concomitant]
     Dosage: STRENGTH:100 U/ML
  11. HUMULIN I [Concomitant]
     Dosage: STRENGTH:100 U/ML

REACTIONS (6)
  - CARDIAC FAILURE [None]
  - CARDIAC PACEMAKER INSERTION [None]
  - HYPERURICAEMIA [None]
  - INTERNATIONAL NORMALISED RATIO INCREASED [None]
  - PNEUMONITIS [None]
  - RESPIRATORY FAILURE [None]
